FAERS Safety Report 26007307 (Version 1)
Quarter: 2025Q4

REPORT INFORMATION
  Report Type: Spontaneous
  Country: US (occurrence: US)
  Receive Date: 20251106
  Receipt Date: 20251106
  Transmission Date: 20260118
  Serious: Yes (Death, Other)
  Sender: INCYTE
  Company Number: US-INCYTE CORPORATION-2025IN012229

PATIENT
  Age: 84 Year
  Weight: 78.458 kg

DRUGS (1)
  1. JAKAFI [Suspect]
     Active Substance: RUXOLITINIB
     Indication: Polycythaemia vera
     Dosage: 5 MILLIGRAM, QD

REACTIONS (1)
  - Death [Fatal]
